FAERS Safety Report 4742673-X (Version None)
Quarter: 2005Q3

REPORT INFORMATION
  Report Type: 
  Country: None (occurrence: None)
  Receive Date: 20050808
  Receipt Date: 20050725
  Transmission Date: 20060218
  Serious: Yes (Other)
  Sender: FDA-Public Use
  Company Number: USA0507103678

PATIENT
  Age: 39 Year
  Sex: Female

DRUGS (3)
  1. CYMBALTA [Suspect]
     Indication: DEPRESSION
     Dosage: 60 MG DAY
  2. PROVIGIL [Concomitant]
  3. LEVOTHROID [Concomitant]

REACTIONS (5)
  - BLOOD PRESSURE DECREASED [None]
  - COAGULOPATHY [None]
  - HAEMORRHAGE [None]
  - PROCEDURAL COMPLICATION [None]
  - UTERINE DILATION AND CURETTAGE [None]
